FAERS Safety Report 12776931 (Version 1)
Quarter: 2016Q3

REPORT INFORMATION
  Report Type: Spontaneous
  Country: DZ (occurrence: DZ)
  Receive Date: 20160923
  Receipt Date: 20160923
  Transmission Date: 20161109
  Serious: Yes (Death)
  Sender: FDA-Public Use
  Company Number: DZ-ASTRAZENECA-2016SF01002

PATIENT
  Age: 64 Year
  Sex: Female

DRUGS (5)
  1. PRIMPERAN [Concomitant]
     Active Substance: METOCLOPRAMIDE HYDROCHLORIDE
     Indication: VOMITING
     Dosage: 2.0DF UNKNOWN
  2. PRIMPERAN [Concomitant]
     Active Substance: METOCLOPRAMIDE HYDROCHLORIDE
     Indication: NAUSEA
     Dosage: 2.0DF UNKNOWN
  3. PERFALGAN [Concomitant]
     Active Substance: ACETAMINOPHEN
     Indication: PAIN
  4. DUPHALAC [Concomitant]
     Active Substance: LACTULOSE
     Indication: CONSTIPATION
     Dosage: 3 SACHETS
  5. MOPRAL [Suspect]
     Active Substance: OMEPRAZOLE SODIUM
     Route: 048

REACTIONS (1)
  - Death [Fatal]
